FAERS Safety Report 13064425 (Version 1)
Quarter: 2016Q4

REPORT INFORMATION
  Report Type: Spontaneous
  Country: US (occurrence: US)
  Receive Date: 20161223
  Receipt Date: 20161223
  Transmission Date: 20170207
  Serious: Yes (Other)
  Sender: FDA-Public Use
  Company Number: None

PATIENT
  Sex: Male

DRUGS (1)
  1. STIVARGA [Suspect]
     Active Substance: REGORAFENIB
     Indication: HEPATOCELLULAR CARCINOMA
     Dosage: 160MG DAILY FOR 21 DAYS ON THEN 7, PO
     Route: 048
     Dates: start: 20160620

REACTIONS (4)
  - Fatigue [None]
  - Diarrhoea [None]
  - Secretion discharge [None]
  - Decreased appetite [None]
